FAERS Safety Report 13053997 (Version 1)
Quarter: 2016Q4

REPORT INFORMATION
  Report Type: Spontaneous
  Country: US (occurrence: US)
  Receive Date: 20161221
  Receipt Date: 20161221
  Transmission Date: 20170207
  Serious: Yes (Disabling)
  Sender: FDA-Public Use
  Company Number: None

PATIENT
  Age: 22 Year
  Sex: Female
  Weight: 49.5 kg

DRUGS (2)
  1. DEPO-PROVERA [Suspect]
     Active Substance: MEDROXYPROGESTERONE ACETATE
     Indication: CONTRACEPTION
     Dosage: ?      1 INJECTION(S);OTHER FREQUENCY:EVERY THREE MONTHS;?
     Route: 030
     Dates: start: 20151130, end: 20161028
  2. MICROGESTIN FE [Concomitant]
     Active Substance: ETHINYL ESTRADIOL\FERROUS FUMARATE\NORETHINDRONE ACETATE

REACTIONS (6)
  - Anxiety [None]
  - Anger [None]
  - Depression [None]
  - Panic attack [None]
  - Aggression [None]
  - Mood altered [None]

NARRATIVE: CASE EVENT DATE: 20160201
